FAERS Safety Report 9482193 (Version 4)
Quarter: 2013Q4

REPORT INFORMATION
  Report Type: Spontaneous
  Country: US (occurrence: US)
  Receive Date: 20130828
  Receipt Date: 20131025
  Transmission Date: 20140711
  Serious: Yes (Other)
  Sender: FDA-Public Use
  Company Number: US-JNJFOC-20130813722

PATIENT
  Age: 68 Year
  Sex: Male
  Weight: 88.45 kg

DRUGS (4)
  1. REMICADE [Suspect]
     Indication: COLITIS ULCERATIVE
     Dosage: ABOUT 6 TO 8 YEARS AGO
     Route: 042
     Dates: start: 2006, end: 2013
  2. CHOLESTEROL MEDICATION [Concomitant]
     Indication: BLOOD CHOLESTEROL
     Dates: start: 2012
  3. GLUCOSAMINE [Concomitant]
     Indication: ARTHRITIS
     Route: 065
  4. SIMVASTATIN [Concomitant]
     Indication: BLOOD CHOLESTEROL
     Route: 065

REACTIONS (3)
  - Chronic lymphocytic leukaemia [Not Recovered/Not Resolved]
  - Lymphocytic lymphoma [Not Recovered/Not Resolved]
  - Post procedural infection [Not Recovered/Not Resolved]
